FAERS Safety Report 5431204-7 (Version None)
Quarter: 2007Q3

REPORT INFORMATION
  Report Type: 
  Country: None (occurrence: None)
  Receive Date: 20070830
  Receipt Date: 20070326
  Transmission Date: 20080115
  Serious: No
  Sender: FDA-Public Use
  Company Number: A0645063A

PATIENT
  Age: 30 Year
  Sex: Female

DRUGS (1)
  1. WELLBUTRIN XL [Suspect]
     Indication: DEPRESSION
     Dosage: 450MG PER DAY
     Route: 065

REACTIONS (5)
  - ANXIETY [None]
  - CRYING [None]
  - DEPRESSION [None]
  - HYPERHIDROSIS [None]
  - SKIN ODOUR ABNORMAL [None]
